FAERS Safety Report 10145413 (Version 1)
Quarter: 2014Q2

REPORT INFORMATION
  Report Type: Spontaneous
  Country: US (occurrence: US)
  Receive Date: 20140501
  Receipt Date: 20140501
  Transmission Date: 20141212
  Serious: No
  Sender: FDA-Public Use
  Company Number: US-009507513-1404USA015268

PATIENT
  Sex: Female

DRUGS (2)
  1. ASMANEX TWISTHALER [Suspect]
     Dosage: 220 MICROGRAM/ ONE PUFF, BID
     Route: 055
  2. ASMANEX TWISTHALER [Suspect]
     Dosage: 220 MICROGRAM/ ONE PUFF, BID
     Route: 055

REACTIONS (4)
  - Cough [Unknown]
  - Drug dose omission [Unknown]
  - Product quality issue [Unknown]
  - Product quality issue [Unknown]
